FAERS Safety Report 10866256 (Version 1)
Quarter: 2015Q1

REPORT INFORMATION
  Report Type: Spontaneous
  Country: US (occurrence: None)
  Receive Date: 20150220
  Receipt Date: 20150220
  Transmission Date: 20150721
  Serious: Yes (Hospitalization)
  Sender: FDA-Public Use
  Company Number: 2015SCAL000039

PATIENT
  Age: 2 Year
  Sex: Male

DRUGS (1)
  1. CLONIDINE HYDROCHLORIDE. [Suspect]
     Active Substance: CLONIDINE HYDROCHLORIDE
     Indication: PRODUCT USED FOR UNKNOWN INDICATION

REACTIONS (11)
  - Hypotonia [None]
  - Somnolence [None]
  - Blood pressure decreased [None]
  - Toxicity to various agents [None]
  - Peripheral coldness [None]
  - Respiratory rate decreased [None]
  - Lethargy [None]
  - Atrioventricular block first degree [None]
  - Accidental exposure to product by child [None]
  - Miosis [None]
  - Depression [None]
